FAERS Safety Report 17831063 (Version 2)
Quarter: 2021Q4

REPORT INFORMATION
  Report Type: Spontaneous
  Country: FR (occurrence: FR)
  Receive Date: 20200527
  Receipt Date: 20211216
  Transmission Date: 20220303
  Serious: Yes (Hospitalization, Congenital Anomaly, Other)
  Sender: FDA-Public Use
  Company Number: FR-ABBOTT-11P-056-0839931-00

PATIENT
  Age: 0 Day
  Sex: Male

DRUGS (5)
  1. VALPROIC ACID [Suspect]
     Active Substance: VALPROIC ACID
     Indication: Maternal exposure timing unspecified
     Route: 064
  2. VALPROIC ACID [Suspect]
     Active Substance: VALPROIC ACID
     Route: 064
  3. LAMOTRIGINE [Suspect]
     Active Substance: LAMOTRIGINE
     Indication: Maternal exposure timing unspecified
     Route: 064
  4. LAMICTAL [Concomitant]
     Active Substance: LAMOTRIGINE
     Indication: Maternal exposure timing unspecified
     Route: 064
  5. FOLIC ACID [Concomitant]
     Active Substance: FOLIC ACID
     Indication: Maternal exposure timing unspecified
     Route: 064

REACTIONS (43)
  - Hypospadias [Recovered/Resolved]
  - Foetal exposure during pregnancy [Unknown]
  - Attention deficit hyperactivity disorder [Unknown]
  - Language disorder [Unknown]
  - Scoliosis [Unknown]
  - Talipes [Unknown]
  - Speech sound disorder [Unknown]
  - Developmental delay [Unknown]
  - Speech disorder [Unknown]
  - Disturbance in attention [Unknown]
  - Learning disorder [Unknown]
  - Memory impairment [Unknown]
  - Cognitive disorder [Unknown]
  - Fine motor skill dysfunction [Unknown]
  - Developmental coordination disorder [Unknown]
  - Gross motor delay [Unknown]
  - Mental disorder [Unknown]
  - Aphasia [Unknown]
  - Dyscalculia [Unknown]
  - Attention deficit hyperactivity disorder [Unknown]
  - Dysgraphia [Unknown]
  - Dysgraphia [Unknown]
  - Intellectual disability [Unknown]
  - Dyslexia [Unknown]
  - Dysmorphism [Unknown]
  - Phobia [Unknown]
  - Hypotonia [Unknown]
  - Foot deformity [Unknown]
  - Knee deformity [Unknown]
  - Joint laxity [Unknown]
  - Social (pragmatic) communication disorder [Unknown]
  - Anxiety [Unknown]
  - Fatigue [Unknown]
  - Femoral hernia [Unknown]
  - Eye pain [Unknown]
  - Circumcision [Unknown]
  - Ear disorder [Unknown]
  - Excessive eye blinking [Unknown]
  - Upper respiratory tract infection [Unknown]
  - Pain in extremity [Unknown]
  - Inguinal hernia [Unknown]
  - Visual acuity reduced [Unknown]
  - Poor personal hygiene [Unknown]

NARRATIVE: CASE EVENT DATE: 20090113
